FAERS Safety Report 5131192-7 (Version None)
Quarter: 2006Q4

REPORT INFORMATION
  Report Type: 
  Country: None (occurrence: None)
  Receive Date: 20061017
  Receipt Date: 20061017
  Transmission Date: 20070319
  Serious: Yes (Hospitalization)
  Sender: FDA-Public Use
  Company Number: None

PATIENT
  Age: 79 Year
  Sex: Male
  Weight: 63.5 kg

DRUGS (9)
  1. RISPERIDONE [Suspect]
     Indication: SCHIZOPHRENIA
     Dosage: 1 MG  BID   PO
     Route: 048
     Dates: start: 20060927, end: 20061011
  2. ASPIRIN [Concomitant]
  3. CLARITHROMYCIN [Concomitant]
  4. DOCUSATE SODIUM [Concomitant]
  5. FERROUS SULFATE TAB [Concomitant]
  6. LEVOTHYROXINE SODIUM [Concomitant]
  7. OMEPRAZOLE [Concomitant]
  8. ACETAMINOPHEN [Concomitant]
  9. PHENOL [Concomitant]

REACTIONS (4)
  - ANAEMIA [None]
  - CONDITION AGGRAVATED [None]
  - NEUTROPENIA [None]
  - PHARYNGOLARYNGEAL PAIN [None]
